FAERS Safety Report 16134958 (Version 1)
Quarter: 2019Q1

REPORT INFORMATION
  Report Type: Spontaneous
  Country: US (occurrence: US)
  Receive Date: 20190329
  Receipt Date: 20190329
  Transmission Date: 20190418
  Serious: No
  Sender: FDA-Public Use
  Company Number: US-BAYER-2019-062894

PATIENT
  Age: 50 Year
  Sex: Female
  Weight: 103 kg

DRUGS (2)
  1. MIRALAX [Suspect]
     Active Substance: POLYETHYLENE GLYCOL 3350
     Indication: GASTROINTESTINAL DISORDER
     Dosage: 1 TEASPOON DAILY
     Route: 048
     Dates: start: 201903
  2. MIRALAX [Suspect]
     Active Substance: POLYETHYLENE GLYCOL 3350
     Indication: ANORECTAL OPERATION
     Dosage: UNK
     Dates: start: 2018

REACTIONS (3)
  - Off label use [Unknown]
  - Product use in unapproved indication [Unknown]
  - Dysgeusia [Unknown]

NARRATIVE: CASE EVENT DATE: 201806
